FAERS Safety Report 19905520 (Version 1)
Quarter: 2021Q3

REPORT INFORMATION
  Report Type: Spontaneous
  Country: US (occurrence: US)
  Receive Date: 20210930
  Receipt Date: 20210930
  Transmission Date: 20211014
  Serious: No
  Sender: FDA-Public Use
  Company Number: None

PATIENT
  Age: 76 Year
  Sex: Male

DRUGS (2)
  1. LISINOPRIL (LISINOPRIL 40MG TAB) [Suspect]
     Active Substance: LISINOPRIL
     Indication: DIABETES MELLITUS
     Route: 048
     Dates: start: 20170427, end: 20210728
  2. LISINOPRIL (LISINOPRIL 40MG TAB) [Suspect]
     Active Substance: LISINOPRIL
     Indication: HYPERTENSION
     Route: 048
     Dates: start: 20170427, end: 20210728

REACTIONS (2)
  - Hypoaesthesia oral [None]
  - Angioedema [None]

NARRATIVE: CASE EVENT DATE: 20210728
